FAERS Safety Report 25680439 (Version 3)
Quarter: 2025Q4

REPORT INFORMATION
  Report Type: Spontaneous
  Country: US (occurrence: US)
  Receive Date: 20250814
  Receipt Date: 20251007
  Transmission Date: 20260118
  Serious: No
  Sender: ROCHE
  Company Number: US-ROCHE-10000352486

PATIENT
  Sex: Female

DRUGS (8)
  1. ACTEMRA [Suspect]
     Active Substance: TOCILIZUMAB
     Indication: Giant cell arteritis
     Dosage: STRENGTH:162MG/0.9M
     Route: 058
     Dates: start: 202007
  2. ACTEMRA [Suspect]
     Active Substance: TOCILIZUMAB
     Dosage: STRENGTH:162MG/0.9M, LAST DOSE RECEIVED WAS?21-JUL-2025
     Route: 058
     Dates: start: 2020
  3. FLEXERIL [Concomitant]
     Active Substance: CYCLOBENZAPRINE HYDROCHLORIDE
  4. CELEBREX [Concomitant]
     Active Substance: CELECOXIB
  5. TRAMADOL [Concomitant]
     Active Substance: TRAMADOL
  6. TYLENOL [Concomitant]
     Active Substance: ACETAMINOPHEN
  7. PREDNISONE [Concomitant]
     Active Substance: PREDNISONE
  8. BACTRIM [Concomitant]
     Active Substance: SULFAMETHOXAZOLE\TRIMETHOPRIM

REACTIONS (3)
  - Off label use [Unknown]
  - Urticaria [Unknown]
  - Respiratory disorder [Unknown]
